FAERS Safety Report 6313414-X (Version None)
Quarter: 2009Q3

REPORT INFORMATION
  Report Type: 
  Country: None (occurrence: None)
  Receive Date: 20090814
  Receipt Date: 20090814
  Transmission Date: 20100115
  Serious: No
  Sender: FDA-Public Use
  Company Number: None

PATIENT
  Age: 52 Year
  Sex: Male
  Weight: 65.318 kg

DRUGS (4)
  1. FLONASE [Suspect]
     Indication: HYPERSENSITIVITY
     Dosage: 2 SPRAYS DAILY NASAL
     Route: 045
     Dates: start: 20051018, end: 20051125
  2. ZYRTEC [Concomitant]
  3. NORTATE CREAM [Concomitant]
  4. NIZERAL SHAMPOO [Concomitant]

REACTIONS (4)
  - GLARE [None]
  - HALO VISION [None]
  - METAMORPHOPSIA [None]
  - NIGHT BLINDNESS [None]
